FAERS Safety Report 9458830 (Version 1)
Quarter: 2013Q3

REPORT INFORMATION
  Report Type: Spontaneous
  Country: BR (occurrence: BR)
  Receive Date: 20130814
  Receipt Date: 20130814
  Transmission Date: 20140515
  Serious: Yes (Other)
  Sender: FDA-Public Use
  Company Number: BR-ASTRAZENECA-2013SE62526

PATIENT
  Sex: Female

DRUGS (1)
  1. SYMBICORT TURBUHALER [Suspect]
     Dosage: 320/9 MCG, UNKNOWN FREQUENCY
     Route: 055

REACTIONS (1)
  - Lung neoplasm malignant [Unknown]
